FAERS Safety Report 5351686-9 (Version None)
Quarter: 2007Q2

REPORT INFORMATION
  Report Type: 
  Country: None (occurrence: None)
  Receive Date: 20070518
  Receipt Date: 20070219
  Transmission Date: 20071010
  Serious: No
  Sender: FDA-Public Use
  Company Number: TPA2007A00316

PATIENT
  Age: 42 Year
  Sex: Female
  Weight: 59.8748 kg

DRUGS (1)
  1. ROZEREM [Suspect]
     Indication: INSOMNIA
     Dosage: 16 MG, HS, PER ORAL
     Route: 048
     Dates: start: 20060601

REACTIONS (3)
  - INITIAL INSOMNIA [None]
  - MIDDLE INSOMNIA [None]
  - PRESCRIBED OVERDOSE [None]
